FAERS Safety Report 19255084 (Version 1)
Quarter: 2021Q2

REPORT INFORMATION
  Report Type: Spontaneous
  Country: AU (occurrence: AU)
  Receive Date: 20210513
  Receipt Date: 20210513
  Transmission Date: 20210717
  Serious: Yes (Other)
  Sender: FDA-Public Use
  Company Number: AU-PFIZER INC-2021482114

PATIENT
  Age: 60 Year
  Sex: Female

DRUGS (1)
  1. XELJANZ [Suspect]
     Active Substance: TOFACITINIB CITRATE
     Indication: PSORIATIC ARTHROPATHY
     Dosage: 5 MG, 2X/DAY
     Dates: start: 20210409

REACTIONS (7)
  - Diarrhoea [Unknown]
  - Hot flush [Unknown]
  - Migraine [Unknown]
  - Fatigue [Unknown]
  - Angina pectoris [Unknown]
  - Cold sweat [Unknown]
  - Nausea [Unknown]
